FAERS Safety Report 7733489-0 (Version None)
Quarter: 2011Q3

REPORT INFORMATION
  Report Type: 
  Country: None (occurrence: None)
  Receive Date: 20110817
  Receipt Date: 20100923
  Transmission Date: 20111222
  Serious: No
  Sender: FDA-Public Use
  Company Number: 20085078

PATIENT
  Sex: Male

DRUGS (4)
  1. FENTANYL [Concomitant]
  2. BUPIVACAINE HCL [Concomitant]
  3. CLONIDINE [Concomitant]
  4. LIORESAL [Suspect]
     Indication: MUSCLE SPASTICITY
     Dosage: DAILY, INTRATHECAL
     Route: 037

REACTIONS (5)
  - NAUSEA [None]
  - PAIN [None]
  - DIARRHOEA [None]
  - VOMITING [None]
  - DRUG INEFFECTIVE [None]
